FAERS Safety Report 11047767 (Version 1)
Quarter: 2015Q2

REPORT INFORMATION
  Report Type: Spontaneous
  Country: US (occurrence: US)
  Receive Date: 20150420
  Receipt Date: 20150420
  Transmission Date: 20150821
  Serious: Yes (Disabling, Other)
  Sender: FDA-Public Use
  Company Number: US-009507513-1504USA007374

PATIENT
  Sex: Male

DRUGS (2)
  1. INVANZ [Suspect]
     Active Substance: ERTAPENEM SODIUM
     Dosage: UNK, WITH THREADED PORT
     Dates: start: 20150121
  2. SODIUM CHLORIDE. [Concomitant]
     Active Substance: SODIUM CHLORIDE
     Dosage: UNK

REACTIONS (4)
  - Appendicectomy [Unknown]
  - Chronic kidney disease [Unknown]
  - Neuropathy peripheral [Unknown]
  - Toe amputation [Unknown]

NARRATIVE: CASE EVENT DATE: 2015
